FAERS Safety Report 8965756 (Version 1)
Quarter: 2012Q4

REPORT INFORMATION
  Report Type: Spontaneous
  Country: BR (occurrence: None)
  Receive Date: 20121204
  Receipt Date: 20121204
  Transmission Date: 20130627
  Serious: Yes (Other)
  Sender: FDA-Public Use
  Company Number: 2012-21192

PATIENT
  Age: 30 Year
  Sex: Male

DRUGS (1)
  1. PHENYTOIN [Suspect]
     Indication: EPILEPSY

REACTIONS (10)
  - Gingival hyperplasia [None]
  - Periodontitis [None]
  - Dental plaque [None]
  - Tooth deposit [None]
  - Bone loss [None]
  - Tooth extraction [None]
  - Loose tooth [None]
  - Pseudoepitheliomatous hyperplasia [None]
  - Acanthosis [None]
  - Bacterial infection [None]
